FAERS Safety Report 23081199 (Version 1)
Quarter: 2023Q4

REPORT INFORMATION
  Report Type: Spontaneous
  Country: US (occurrence: US)
  Receive Date: 20231018
  Receipt Date: 20231018
  Transmission Date: 20240110
  Serious: Yes (Other)
  Sender: FDA-Public Use
  Company Number: US-BRACCO-2022US04759

PATIENT
  Age: 52 Year
  Sex: Female

DRUGS (3)
  1. MULTIHANCE [Suspect]
     Active Substance: GADOBENATE DIMEGLUMINE
     Indication: Diagnostic procedure
     Dosage: UNK
     Dates: start: 20221027, end: 20221027
  2. VERAPAMIL [Concomitant]
     Active Substance: VERAPAMIL HYDROCHLORIDE
     Dosage: 40 MG
     Route: 048
  3. ZOLPIDEM [Concomitant]
     Active Substance: ZOLPIDEM TARTRATE
     Dosage: 12.5 MG
     Route: 048

REACTIONS (4)
  - Anaphylactic reaction [Unknown]
  - Loss of consciousness [Unknown]
  - Nausea [Unknown]
  - Wheezing [Unknown]

NARRATIVE: CASE EVENT DATE: 20221027
